FAERS Safety Report 6838894-2 (Version None)
Quarter: 2010Q3

REPORT INFORMATION
  Report Type: 
  Country: None (occurrence: None)
  Receive Date: 20100713
  Receipt Date: 20070718
  Transmission Date: 20110219
  Serious: Yes (Other)
  Sender: FDA-Public Use
  Company Number: US-PFIZER INC-2007037015

PATIENT
  Sex: Female
  Weight: 52.3 kg

DRUGS (12)
  1. CHANTIX [Suspect]
     Indication: SMOKING CESSATION THERAPY
     Dates: start: 20070312, end: 20070401
  2. CHANTIX [Suspect]
     Indication: NICOTINE DEPENDENCE
  3. MEGACE [Concomitant]
     Route: 048
  4. PREMARIN [Concomitant]
     Route: 048
  5. AMBIEN [Concomitant]
  6. PREVACID [Concomitant]
  7. HYDROCHLOROTHIAZIDE [Concomitant]
  8. ZOLOFT [Concomitant]
     Route: 048
  9. PERCOCET [Concomitant]
  10. VALIUM [Concomitant]
     Route: 048
  11. ALL OTHER NON-THERAPEUTIC PRODUCTS [Concomitant]
  12. ELMIRON [Concomitant]

REACTIONS (6)
  - AGITATION [None]
  - BLISTER [None]
  - INSOMNIA [None]
  - NAUSEA [None]
  - SKIN BURNING SENSATION [None]
  - SKIN EXFOLIATION [None]
